FAERS Safety Report 7966095-3 (Version None)
Quarter: 2011Q4

REPORT INFORMATION
  Report Type: 
  Country: None (occurrence: None)
  Receive Date: 20111208
  Receipt Date: 20111202
  Transmission Date: 20120403
  Serious: No
  Sender: FDA-Public Use
  Company Number: US-PFIZER INC-2011294997

PATIENT
  Sex: Male

DRUGS (1)
  1. CELEBREX [Suspect]
     Indication: ARTHRITIS
     Dosage: UNK
     Dates: end: 20100801

REACTIONS (7)
  - SKIN REACTION [None]
  - JOINT SWELLING [None]
  - SKIN DISORDER [None]
  - RASH [None]
  - FUNGAL INFECTION [None]
  - PROSTATOMEGALY [None]
  - PAIN [None]
